FAERS Safety Report 15466026 (Version 1)
Quarter: 2018Q4

REPORT INFORMATION
  Report Type: Spontaneous
  Country: SE (occurrence: SE)
  Receive Date: 20181004
  Receipt Date: 20181004
  Transmission Date: 20190204
  Serious: Yes (Hospitalization, Other)
  Sender: FDA-Public Use
  Company Number: SE-GLAXOSMITHKLINE-B0592188A

PATIENT
  Age: 33 Year
  Sex: Female

DRUGS (6)
  1. IMPLANON [Interacting]
     Active Substance: ETONOGESTREL
     Indication: CONTRACEPTION
     Dosage: 1 DF, UNK
     Route: 065
     Dates: start: 20060124, end: 20080422
  2. STOCRIN [Interacting]
     Active Substance: EFAVIRENZ
     Indication: ANTIVIRAL TREATMENT
  3. KIVEXA [Suspect]
     Active Substance: ABACAVIR SULFATE\LAMIVUDINE
     Indication: HIV INFECTION
     Dosage: 1 DF, UNK
     Route: 048
  4. STOCRIN [Interacting]
     Active Substance: EFAVIRENZ
     Indication: HIV INFECTION
     Dosage: 1 DF, UNK
     Route: 065
  5. DEPO-PROVERA [Interacting]
     Active Substance: MEDROXYPROGESTERONE ACETATE
     Indication: CONTRACEPTION
     Dosage: 1 DF, UNK
     Route: 030
     Dates: start: 20080422, end: 200905
  6. KIVEXA [Interacting]
     Active Substance: ABACAVIR SULFATE\LAMIVUDINE
     Indication: ANTIVIRAL TREATMENT

REACTIONS (6)
  - Pregnancy on contraceptive [Recovered/Resolved]
  - Drug interaction [Recovered/Resolved]
  - Unintended pregnancy [Recovered/Resolved]
  - Unintended pregnancy [Recovered/Resolved]
  - Pregnancy on contraceptive [Recovered/Resolved]
  - Exposure during pregnancy [Unknown]

NARRATIVE: CASE EVENT DATE: 20080407
